FAERS Safety Report 21727666 (Version 2)
Quarter: 2023Q2

REPORT INFORMATION
  Report Type: Spontaneous
  Country: US (occurrence: US)
  Receive Date: 20221214
  Receipt Date: 20230519
  Transmission Date: 20230722
  Serious: Yes (Other)
  Sender: FDA-Public Use
  Company Number: US-PFIZER INC-PV202200122731

PATIENT
  Age: 81 Year
  Sex: Female

DRUGS (1)
  1. IBRANCE [Suspect]
     Active Substance: PALBOCICLIB
     Indication: Neoplasm malignant
     Dosage: 100 MG, CYCLIC (DAILY WITH BREAKFAST FOR 21 DAYS, FOLLOWED BY A 7 DAY REST PERIOD OF A 28 DAY CYCLE)
     Route: 048

REACTIONS (4)
  - Pulmonary oedema [Unknown]
  - Ascites [Unknown]
  - Cystitis [Unknown]
  - Renal disorder [Unknown]
